FAERS Safety Report 8623381-1 (Version None)
Quarter: 2012Q3

REPORT INFORMATION
  Report Type: 
  Country: None (occurrence: None)
  Receive Date: 20120827
  Receipt Date: 20120815
  Transmission Date: 20120928
  Serious: Yes (Other)
  Sender: FDA-Public Use
  Company Number: BR-BRISTOL-MYERS SQUIBB COMPANY-16865024

PATIENT
  Age: 66 Year
  Sex: Female
  Weight: 52 kg

DRUGS (5)
  1. SYNTHROID [Concomitant]
     Indication: HYPOTHYROIDISM
     Dosage: TABS STARTED 25YRS AGO
     Route: 048
  2. SIMVASTATIN [Concomitant]
     Indication: BLOOD CHOLESTEROL INCREASED
     Dosage: STARTED 5 YRS AGO
     Route: 048
  3. IRBESARTAN AND HYDROCHLOROTHIAZIDE [Suspect]
     Indication: HYPERTENSION
     Dosage: 1 DF= 1 TAB. FORM: 150/12.5MG TABS IN MORNING. STARTED 3 YRS AGO
     Route: 048
  4. EFFEXOR [Concomitant]
     Indication: DEPRESSION
     Dosage: TABS. STARTED 6 YRS AGO
     Route: 048
  5. GINKGO BILOBA [Concomitant]
     Indication: LABYRINTHITIS
     Dosage: TAB
     Route: 048

REACTIONS (2)
  - SYNCOPE [None]
  - LABYRINTHITIS [None]
